FAERS Safety Report 15267378 (Version 5)
Quarter: 2020Q3

REPORT INFORMATION
  Report Type: Report from Study
  Country: None (occurrence: KR)
  Receive Date: 20180811
  Receipt Date: 20200713
  Transmission Date: 20201102
  Serious: Yes (Hospitalization)
  Sender: FDA-Public Use
  Company Number: KR-ABBVIE-18K-090-2447364-00

PATIENT
  Age: 48 Year
  Sex: Female
  Weight: 52 kg

DRUGS (17)
  1. HUMIRA [Suspect]
     Active Substance: ADALIMUMAB
     Indication: BEHCET^S SYNDROME
     Route: 058
     Dates: start: 20160317, end: 20160317
  2. MESALAZINE [Concomitant]
     Active Substance: MESALAMINE
     Indication: BEHCET^S SYNDROME
     Route: 048
     Dates: start: 20060214
  3. FEROBA [Concomitant]
     Active Substance: FERROUS SULFATE\PROTEASE
     Indication: ANAEMIA
     Route: 048
     Dates: start: 20151231
  4. AZATHIOPRINE. [Concomitant]
     Active Substance: AZATHIOPRINE
     Route: 048
     Dates: start: 20160621
  5. COLCHICINE. [Concomitant]
     Active Substance: COLCHICINE
     Indication: BEHCET^S SYNDROME
     Route: 048
     Dates: start: 20091020
  6. HUMIRA [Suspect]
     Active Substance: ADALIMUMAB
     Route: 058
     Dates: start: 20160414
  7. NORZYME [Concomitant]
     Indication: DYSPEPSIA
     Route: 048
     Dates: start: 20160901, end: 20160915
  8. CIPROFLOXACIN. [Concomitant]
     Active Substance: CIPROFLOXACIN
     Indication: ABDOMINAL PAIN
     Dates: start: 20170110, end: 20170117
  9. POLYSACCHARIDE IRON [Concomitant]
     Indication: ANAEMIA
     Route: 048
     Dates: start: 20121218
  10. CALCIUM CARBONATE. [Concomitant]
     Active Substance: CALCIUM CARBONATE
     Indication: CALCIUM DEFICIENCY
     Route: 048
     Dates: start: 20150127
  11. BECLOMETHASONE DIPROPIONATE [Concomitant]
     Active Substance: BECLOMETHASONE DIPROPIONATE
     Indication: BEHCET^S SYNDROME
     Route: 048
     Dates: start: 20160531, end: 20160612
  12. HUMIRA [Suspect]
     Active Substance: ADALIMUMAB
     Dosage: QD ONCE
     Route: 058
     Dates: start: 20160331, end: 20160331
  13. AZATHIOPRINE. [Concomitant]
     Active Substance: AZATHIOPRINE
     Indication: BEHCET^S SYNDROME
     Route: 048
     Dates: start: 20100720, end: 20130312
  14. MOTILITONE [Concomitant]
     Active Substance: HERBALS
     Indication: ABDOMINAL PAIN UPPER
     Route: 048
     Dates: start: 20160331, end: 20160331
  15. PREDNISOLONE. [Concomitant]
     Active Substance: PREDNISOLONE
     Indication: MYOPATHY
     Route: 048
     Dates: start: 20150930
  16. TRIMEBUTINE MALEATE [Concomitant]
     Active Substance: TRIMEBUTINE MALEATE
     Indication: ABDOMINAL PAIN
     Route: 048
     Dates: start: 20160531, end: 20160531
  17. MOTILITONE [Concomitant]
     Active Substance: HERBALS
     Indication: DYSPEPSIA
     Route: 048
     Dates: start: 20160901, end: 20160915

REACTIONS (7)
  - Intestinal obstruction [Recovered/Resolved]
  - Behcet^s syndrome [Recovered/Resolved]
  - Behcet^s syndrome [Recovered/Resolved]
  - Behcet^s syndrome [Recovered/Resolved]
  - Behcet^s syndrome [Recovered/Resolved]
  - Behcet^s syndrome [Recovered/Resolved]
  - Pyelonephritis acute [Recovered/Resolved]

NARRATIVE: CASE EVENT DATE: 20160418
